FAERS Safety Report 9300339 (Version 1)
Quarter: 2013Q2

REPORT INFORMATION
  Report Type: Spontaneous
  Country: US (occurrence: US)
  Receive Date: 20130521
  Receipt Date: 20130521
  Transmission Date: 20140414
  Serious: Yes (Hospitalization, Other)
  Sender: FDA-Public Use
  Company Number: US-PFIZER INC-2013154435

PATIENT
  Age: 78 Year
  Sex: Male
  Weight: 68.03 kg

DRUGS (1)
  1. CRIZOTINIB [Suspect]
     Indication: LUNG CARCINOMA CELL TYPE UNSPECIFIED STAGE IV
     Dosage: 250 MG, 2X/DAY

REACTIONS (3)
  - Dyspnoea [Unknown]
  - Respiratory distress [Unknown]
  - Pneumonitis [Unknown]
